FAERS Safety Report 11080863 (Version 1)
Quarter: 2015Q2

REPORT INFORMATION
  Report Type: Spontaneous
  Country: US (occurrence: None)
  Receive Date: 20150430
  Receipt Date: 20150430
  Transmission Date: 20150821
  Serious: No
  Sender: FDA-Public Use
  Company Number: None

PATIENT
  Age: 42 Year
  Sex: Female
  Weight: 78.93 kg

DRUGS (5)
  1. VITAMIN A [Concomitant]
     Active Substance: VITAMIN A
  2. VITAMIN C [Concomitant]
     Active Substance: ASCORBIC ACID
  3. BELVIQ [Suspect]
     Active Substance: LORCASERIN HYDROCHLORIDE
     Indication: WEIGHT CONTROL
     Dosage: 1 PILL
     Route: 048
     Dates: start: 20150424, end: 20150429
  4. DORYX [Concomitant]
     Active Substance: DOXYCYCLINE HYCLATE
  5. MULTI VITAMIN [Concomitant]
     Active Substance: VITAMINS

REACTIONS (3)
  - Headache [None]
  - Fatigue [None]
  - Micturition urgency [None]

NARRATIVE: CASE EVENT DATE: 20150404
